FAERS Safety Report 10477597 (Version 2)
Quarter: 2014Q4

REPORT INFORMATION
  Report Type: Spontaneous
  Country: JP (occurrence: None)
  Receive Date: 20140924
  Receipt Date: 20141119
  Transmission Date: 20150528
  Serious: Yes (Death, Life-Threatening)
  Sender: FDA-Public Use
  Company Number: ABR_01773_2014

PATIENT
  Age: 68 Year
  Sex: Female

DRUGS (2)
  1. GLIADEL [Suspect]
     Active Substance: CARMUSTINE
     Indication: GLIOBLASTOMA
     Dosage: 8 DF 1X INTRACERABRAL
     Dates: start: 20140714
  2. CEFAMEZIN /00288502/ [Concomitant]
     Active Substance: CEFAZOLIN

REACTIONS (16)
  - Skin graft [None]
  - Infection [None]
  - Brain oedema [None]
  - Impaired healing [None]
  - Suture rupture [None]
  - Postoperative wound infection [None]
  - Sepsis [None]
  - Wound haemorrhage [None]
  - Haemodialysis [None]
  - Hypoalbuminaemia [None]
  - Chronic kidney disease [None]
  - Post procedural complication [None]
  - Wound necrosis [None]
  - Hypoproteinaemia [None]
  - Skin exfoliation [None]
  - Cerebrospinal fluid leakage [None]

NARRATIVE: CASE EVENT DATE: 20140714
